FAERS Safety Report 9487277 (Version 1)
Quarter: 2013Q3

REPORT INFORMATION
  Report Type: Spontaneous
  Country: US (occurrence: US)
  Receive Date: 20130829
  Receipt Date: 20130829
  Transmission Date: 20140515
  Serious: Yes (Other)
  Sender: FDA-Public Use
  Company Number: US-TEVA-429034USA

PATIENT
  Age: 58 Year
  Sex: Female

DRUGS (2)
  1. WARFARIN [Suspect]
     Indication: ANTICOAGULANT THERAPY
     Dosage: 2MG DAILY
     Route: 048
  2. ENOXAPARIN SODIUM [Concomitant]
     Route: 065

REACTIONS (2)
  - Haemothorax [Recovered/Resolved]
  - Pleural effusion [Recovered/Resolved]
